FAERS Safety Report 7798256-0 (Version None)
Quarter: 2011Q4

REPORT INFORMATION
  Report Type: 
  Country: None (occurrence: None)
  Receive Date: 20111004
  Receipt Date: 20110919
  Transmission Date: 20120403
  Serious: Yes (Hospitalization)
  Sender: FDA-Public Use
  Company Number: FK201102014

PATIENT
  Age: 60 Year
  Sex: Female

DRUGS (3)
  1. CINACALCET (CINACALCET) (CINACALCET) [Concomitant]
  2. CIPROFLOXACIN [Suspect]
     Indication: ABSCESS DRAINAGE
     Dosage: INTRAVENOUS (NOT OTHERWISE SPECIFIED)
     Route: 042
  3. CEFOXITIN [Suspect]
     Indication: ABSCESS DRAINAGE

REACTIONS (7)
  - RETCHING [None]
  - SCREAMING [None]
  - TREMOR [None]
  - MUSCLE RIGIDITY [None]
  - ABNORMAL BEHAVIOUR [None]
  - CATATONIA [None]
  - MYOCLONUS [None]
